FAERS Safety Report 4832775-1 (Version None)
Quarter: 2005Q4

REPORT INFORMATION
  Report Type: 
  Country: None (occurrence: None)
  Receive Date: 20051117
  Receipt Date: 20051102
  Transmission Date: 20060501
  Serious: Yes (Other)
  Sender: FDA-Public Use
  Company Number: US_0511123796

PATIENT
  Sex: Female

DRUGS (2)
  1. CYMBALTA [Suspect]
     Dosage: 30 MG DAY
     Dates: start: 20050713
  2. TRAZODONE [Concomitant]

REACTIONS (1)
  - LOSS OF CONSCIOUSNESS [None]
